FAERS Safety Report 20698113 (Version 3)
Quarter: 2022Q2

REPORT INFORMATION
  Report Type: Spontaneous
  Country: None (occurrence: PT)
  Receive Date: 20220412
  Receipt Date: 20220603
  Transmission Date: 20220721
  Serious: Yes (Hospitalization, Other)
  Sender: FDA-Public Use
  Company Number: PT-AKCEA THERAPEUTICS, INC.-2022IS003165

PATIENT
  Age: 30 Year
  Sex: Male

DRUGS (7)
  1. TEGSEDI [Suspect]
     Active Substance: INOTERSEN SODIUM
     Indication: Hereditary neuropathic amyloidosis
     Route: 065
     Dates: start: 202103, end: 202106
  2. DEVICE [Suspect]
     Active Substance: DEVICE
  3. TEGSEDI [Suspect]
     Active Substance: INOTERSEN SODIUM
     Dates: start: 202106, end: 20211029
  4. IVABRADINE [Concomitant]
     Active Substance: IVABRADINE
     Route: 065
  5. BISOPROLOL [Concomitant]
     Active Substance: BISOPROLOL
     Route: 065
  6. DAGRAVIT /01709701/ [Concomitant]
     Route: 065
  7. CIALIS [Concomitant]
     Active Substance: TADALAFIL
     Route: 065

REACTIONS (7)
  - Liver disorder [Unknown]
  - Endocarditis [Unknown]
  - Drug-induced liver injury [Unknown]
  - Toxicity to various agents [Unknown]
  - Thrombocytopenia [Unknown]
  - Alanine aminotransferase increased [Recovered/Resolved]
  - Aspartate aminotransferase increased [Recovered/Resolved]

NARRATIVE: CASE EVENT DATE: 20210501
